FAERS Safety Report 12740698 (Version 1)
Quarter: 2016Q3

REPORT INFORMATION
  Report Type: Spontaneous
  Country: US (occurrence: US)
  Receive Date: 20160914
  Receipt Date: 20160914
  Transmission Date: 20161109
  Serious: No
  Sender: FDA-Public Use
  Company Number: US-009507513-1608USA012809

PATIENT
  Sex: Female

DRUGS (1)
  1. NUVARING [Suspect]
     Active Substance: ETHINYL ESTRADIOL\ETONOGESTREL
     Dosage: 0.015/0.12 MG, EVERY THREE WEEKS
     Route: 067
     Dates: start: 201408

REACTIONS (3)
  - Product quality issue [Unknown]
  - Device expulsion [Unknown]
  - No adverse event [Unknown]
